FAERS Safety Report 12480396 (Version 2)
Quarter: 2016Q3

REPORT INFORMATION
  Report Type: Report from Study
  Country: US (occurrence: US)
  Receive Date: 20160620
  Receipt Date: 20160712
  Transmission Date: 20161109
  Serious: Yes (Other)
  Sender: FDA-Public Use
  Company Number: US-BIOGEN-2016BI00253265

PATIENT
  Sex: Female

DRUGS (2)
  1. TECFIDERA [Suspect]
     Active Substance: DIMETHYL FUMARATE
     Indication: EXPOSURE VIA FATHER
     Dosage: STARTING DOSE
     Route: 065
     Dates: start: 20140722, end: 20140729
  2. TECFIDERA [Suspect]
     Active Substance: DIMETHYL FUMARATE
     Dosage: MAINTENANCE DOSE
     Route: 065
     Dates: start: 20140730

REACTIONS (2)
  - Caesarean section [Recovered/Resolved]
  - Exposure via father [Recovered/Resolved]
